FAERS Safety Report 16367197 (Version 1)
Quarter: 2019Q3

REPORT INFORMATION
  Report Type: Spontaneous
  Country: US (occurrence: US)
  Receive Date: 20190528
  Receipt Date: 20190528
  Transmission Date: 20191004
  Serious: Yes (Hospitalization)
  Sender: FDA-Public Use
  Company Number: None

PATIENT
  Age: 45 Year
  Sex: Female

DRUGS (10)
  1. HUMIRA [Suspect]
     Active Substance: ADALIMUMAB
     Indication: COLITIS ULCERATIVE
     Route: 058
  2. ZANTAC [Concomitant]
     Active Substance: RANITIDINE HYDROCHLORIDE
  3. VICODIN [Concomitant]
     Active Substance: ACETAMINOPHEN\HYDROCODONE BITARTRATE
  4. CYMBA ITA [Concomitant]
  5. IMURAN [Concomitant]
     Active Substance: AZATHIOPRINE
  6. CALTRATE [Concomitant]
     Active Substance: CALCIUM CARBONATE
  7. BENTYL [Concomitant]
     Active Substance: DICYCLOMINE HYDROCHLORIDE
  8. XANAX [Concomitant]
     Active Substance: ALPRAZOLAM
  9. CENTRUM [Concomitant]
     Active Substance: VITAMINS
  10. PREVACID [Concomitant]
     Active Substance: LANSOPRAZOLE

REACTIONS (2)
  - Therapy cessation [None]
  - Hernia repair [None]

NARRATIVE: CASE EVENT DATE: 20190524
